FAERS Safety Report 25214149 (Version 5)
Quarter: 2025Q2

REPORT INFORMATION
  Report Type: Spontaneous
  Country: DE (occurrence: DE)
  Receive Date: 20250418
  Receipt Date: 20250514
  Transmission Date: 20250716
  Serious: Yes (Life-Threatening, Other)
  Sender: PFIZER
  Company Number: DE-002147023-NVSC2020DE371243

PATIENT
  Age: 73 Year
  Sex: Female
  Weight: 73 kg

DRUGS (50)
  1. PALBOCICLIB [Suspect]
     Active Substance: PALBOCICLIB
     Indication: Hormone receptor positive HER2 negative breast cancer
     Route: 048
     Dates: start: 20200801, end: 20200821
  2. PALBOCICLIB [Suspect]
     Active Substance: PALBOCICLIB
     Indication: Breast cancer metastatic
     Route: 048
     Dates: end: 20200821
  3. PALBOCICLIB [Suspect]
     Active Substance: PALBOCICLIB
     Dosage: 100 MG, QD (FROM 01 AUG 2020, 21 DAYS  INTAKE, 7 DAYS PAUSE)
     Route: 048
     Dates: start: 20200912, end: 20210624
  4. PALBOCICLIB [Suspect]
     Active Substance: PALBOCICLIB
     Dosage: 125 MG, QD (FROM 01 AUG 2020, 21 DAYS  INTAKE, 7 DAYS PAUSE)
     Route: 048
     Dates: start: 20200912, end: 20210624
  5. PALBOCICLIB [Suspect]
     Active Substance: PALBOCICLIB
     Route: 048
     Dates: end: 20210624
  6. PALBOCICLIB [Suspect]
     Active Substance: PALBOCICLIB
     Route: 048
     Dates: end: 20210624
  7. PALBOCICLIB [Suspect]
     Active Substance: PALBOCICLIB
     Dosage: 100 MG, QD (FROM 01 AUG 2020, 21 DAYS  INTAKE, 7 DAYS PAUSE)
     Route: 048
     Dates: start: 20210702, end: 20210729
  8. PALBOCICLIB [Suspect]
     Active Substance: PALBOCICLIB
     Dosage: 125 MG, QD (FROM 01 AUG 2020, 21 DAYS  INTAKE, 7 DAYS PAUSE)
     Route: 048
     Dates: start: 20210702, end: 20210729
  9. PALBOCICLIB [Suspect]
     Active Substance: PALBOCICLIB
     Route: 048
     Dates: end: 20210729
  10. PALBOCICLIB [Suspect]
     Active Substance: PALBOCICLIB
     Route: 048
     Dates: end: 20210729
  11. PALBOCICLIB [Suspect]
     Active Substance: PALBOCICLIB
     Route: 048
     Dates: start: 20210806
  12. PALBOCICLIB [Suspect]
     Active Substance: PALBOCICLIB
     Route: 048
     Dates: end: 20210808
  13. PALBOCICLIB [Suspect]
     Active Substance: PALBOCICLIB
     Route: 048
     Dates: start: 20210806
  14. PALBOCICLIB [Suspect]
     Active Substance: PALBOCICLIB
     Dosage: 75 MG, QD
     Route: 048
     Dates: start: 20210806, end: 20240808
  15. PALBOCICLIB [Suspect]
     Active Substance: PALBOCICLIB
     Dosage: 75 MG, QD (SCHEMA 21 DAYS INTAKE, 7  DAYS PAUSE))
     Route: 048
     Dates: start: 20210808
  16. PALBOCICLIB [Suspect]
     Active Substance: PALBOCICLIB
     Dosage: 125 MG, QD (FROM 01 AUG 2020, 21 DAYS  INTAKE, 7 DAYS PAUSE)
     Dates: end: 20200821
  17. PALBOCICLIB [Suspect]
     Active Substance: PALBOCICLIB
     Dosage: 125 MG, QD, START DATE: 01-AUG-2020,  CYCLIC (FROM 01 AUG 2020, 21 DAYS INTAKE,  7 DAYS PAUSE)
     Dates: end: 20200821
  18. PALBOCICLIB [Suspect]
     Active Substance: PALBOCICLIB
     Dosage: 100 MG, CYCLIC, START DATE: 12-SEP-2020  (QD, 21 DAYS INTAKE, 7 DAYS PAUSE)
     Dates: end: 20210624
  19. PALBOCICLIB [Suspect]
     Active Substance: PALBOCICLIB
     Dosage: 125 MG, CYCLIC, START DATE: 12-SEP-2020  (QD, 21 DAYS INTAKE, 7 DAYS PAUSE)
     Dates: end: 20210624
  20. PALBOCICLIB [Suspect]
     Active Substance: PALBOCICLIB
     Dosage: 100 MG, QD, CYCLIC, START DATE: 02-JUL 2021 (SCHEMA 21 DAYS INTAKE, 7 DAYS PAUSE)
     Dates: end: 20210729
  21. PALBOCICLIB [Suspect]
     Active Substance: PALBOCICLIB
     Dosage: 125 MG, CYCLIC, START DATE: 02-JUL-2021 (QD, SCHEMA 21 DAYS INTAKE, 7 DAYS PAUSE)
     Dates: end: 20210729
  22. PALBOCICLIB [Suspect]
     Active Substance: PALBOCICLIB
     Dosage: 125 MG, CYCLIC, START DATE:06-AUG-2021  (ONCE A DAY, SCHEMA 21 DAYS INTAKE, 7 DAYS PAUSE)
  23. PALBOCICLIB [Suspect]
     Active Substance: PALBOCICLIB
     Dosage: 5 MG, QD,CYCLIC, START DATE: 06-AUG-2021  (SCHEMA 21 DAYS INTAKE, 7 DAYS PAUSE)
     Dates: end: 20210808
  24. PALBOCICLIB [Suspect]
     Active Substance: PALBOCICLIB
     Dosage: 5 MG, QD,CYCLIC, START DATE: 06-AUG-2021  (SCHEMA 21 DAYS INTAKE, 7 DAYS PAUSE)
     Dates: start: 20210808
  25. PALBOCICLIB [Suspect]
     Active Substance: PALBOCICLIB
     Dosage: 100 MG, CYCLIC, START DATE: 12-SEP-2020  (QD, 21 DAYS INTAKE, 7 DAYS PAUSE)
     Dates: end: 20210624
  26. PALBOCICLIB [Suspect]
     Active Substance: PALBOCICLIB
     Dosage: 100 MG, QD, CYCLIC, START DATE: 02-JUL  2021 (SCHEMA 21 DAYS INTAKE, 7 DAYS  PAUSE)
     Dates: end: 20210729
  27. PALBOCICLIB [Suspect]
     Active Substance: PALBOCICLIB
     Dosage: 125 MG, CYCLIC, START DATE:06-AUG-2021  (ONCE A DAY, SCHEMA 21 DAYS INTAKE, 7  DAYS PAUSE)
  28. PALBOCICLIB [Suspect]
     Active Substance: PALBOCICLIB
     Dosage: 5 MG, QD,CYCLIC, START DATE: 06-AUG-2021  (SCHEMA 21 DAYS INTAKE, 7 DAYS PAUSE)
     Dates: end: 20210808
  29. FULVESTRANT [Suspect]
     Active Substance: FULVESTRANT
     Indication: Hormone receptor positive HER2 negative breast cancer
     Route: 030
     Dates: start: 20200411, end: 20200702
  30. FULVESTRANT [Suspect]
     Active Substance: FULVESTRANT
     Route: 030
     Dates: start: 20200715, end: 20200715
  31. FULVESTRANT [Suspect]
     Active Substance: FULVESTRANT
     Route: 030
  32. FULVESTRANT [Suspect]
     Active Substance: FULVESTRANT
     Dates: start: 20210715
  33. FULVESTRANT [Suspect]
     Active Substance: FULVESTRANT
     Dates: start: 20210715
  34. FULVESTRANT [Suspect]
     Active Substance: FULVESTRANT
  35. FULVESTRANT [Suspect]
     Active Substance: FULVESTRANT
     Dates: start: 20200715
  36. RIBOCICLIB [Suspect]
     Active Substance: RIBOCICLIB
     Indication: Hormone receptor positive HER2 negative breast cancer
     Route: 048
     Dates: start: 20200411, end: 20200525
  37. RIBOCICLIB [Suspect]
     Active Substance: RIBOCICLIB
     Route: 048
     Dates: end: 20200525
  38. RIBOCICLIB [Suspect]
     Active Substance: RIBOCICLIB
     Route: 048
     Dates: start: 20200704, end: 20200715
  39. KISQALI [Suspect]
     Active Substance: RIBOCICLIB SUCCINATE
     Indication: Hormone receptor positive HER2 negative breast cancer
     Dosage: 600 MG, QD, CYCLIC (SCHEMA 21 DAYS  INTAKE, THAN 7 DAYS PAUSE)
     Dates: start: 20200411, end: 20200525
  40. KISQALI [Suspect]
     Active Substance: RIBOCICLIB SUCCINATE
     Indication: Product used for unknown indication
     Dosage: 400 MG, QD, CYCLIC (SCHEMA 21 DAYS  INTAKE, THAN 7 DAYS PAUSE)
     Dates: start: 20200704, end: 20200715
  41. KISQALI [Suspect]
     Active Substance: RIBOCICLIB SUCCINATE
     Dosage: 600 MG, QD, CYCLIC (SCHEMA 21 DAYS  INTAKE, THAN 7 DAYS PAUSE)
     Dates: end: 20200525
  42. CANDESARTAN [Concomitant]
     Active Substance: CANDESARTAN
     Indication: Hypertension
     Dosage: 16 MG, QD (ONCE IN THE MORNING)
     Route: 048
     Dates: start: 20190815, end: 20200525
  43. CANDESARTAN [Concomitant]
     Active Substance: CANDESARTAN
     Dosage: 16 MG, QD (ONCE IN THE MORNING)
     Route: 048
     Dates: start: 20200411, end: 20200525
  44. LEVOTHYROXINE [Concomitant]
     Active Substance: LEVOTHYROXINE
     Indication: Hypothyroidism
     Dosage: 15 UG, QW (ONCE IN THE MORNING / EVERY 7  DAYS)
     Route: 048
     Dates: start: 20200411, end: 20200525
  45. LEVOTHYROXINE [Concomitant]
     Active Substance: LEVOTHYROXINE
     Route: 048
     Dates: start: 20200411, end: 20200525
  46. LEVOTHYROXINE [Concomitant]
     Active Substance: LEVOTHYROXINE
     Dosage: 150 UG, QW (ONCE IN THE MORNING / EVERY  7 DAYS)
     Route: 048
     Dates: start: 20200411, end: 20200525
  47. LEVOTHYROXINE [Concomitant]
     Active Substance: LEVOTHYROXINE
     Route: 048
  48. LEVOTHYROXINE [Concomitant]
     Active Substance: LEVOTHYROXINE
     Route: 048
     Dates: start: 20200914
  49. LEVOTHYROXINE [Concomitant]
     Active Substance: LEVOTHYROXINE
     Route: 048
     Dates: start: 20200914
  50. ZOMETA [Concomitant]
     Active Substance: ZOLEDRONIC ACID
     Indication: Product used for unknown indication
     Route: 042
     Dates: start: 20200411, end: 20200525

REACTIONS (11)
  - Neutropenia [Recovered/Resolved]
  - Thrombocytopenia [Recovered/Resolved]
  - Alanine aminotransferase increased [Recovered/Resolved]
  - Aspartate aminotransferase increased [Recovered/Resolved]
  - Pulpitis dental [Recovered/Resolved]
  - Fatigue [Not Recovered/Not Resolved]
  - Joint stiffness [Not Recovered/Not Resolved]
  - Abdominal pain [Recovered/Resolved]
  - Dyspepsia [Not Recovered/Not Resolved]
  - Diarrhoea [Recovered/Resolved]
  - Back pain [Not Recovered/Not Resolved]

NARRATIVE: CASE EVENT DATE: 20200522
